FAERS Safety Report 24323860 (Version 2)
Quarter: 2024Q4

REPORT INFORMATION
  Report Type: Spontaneous
  Country: BR (occurrence: BR)
  Receive Date: 20240916
  Receipt Date: 20241004
  Transmission Date: 20250114
  Serious: Yes (Hospitalization)
  Sender: ELI LILLY AND CO
  Company Number: BR-ELI_LILLY_AND_COMPANY-BR202409003191

PATIENT
  Age: 41 Year
  Sex: Male

DRUGS (12)
  1. TIRZEPATIDE [Suspect]
     Active Substance: TIRZEPATIDE
     Indication: Weight control
     Dosage: 10 MG, WEEKLY (1/W)
     Route: 058
     Dates: start: 202404
  2. TIRZEPATIDE [Suspect]
     Active Substance: TIRZEPATIDE
     Indication: Weight control
     Dosage: 10 MG, WEEKLY (1/W)
     Route: 058
     Dates: start: 202404
  3. TIRZEPATIDE [Suspect]
     Active Substance: TIRZEPATIDE
     Indication: Weight control
     Dosage: 10 MG, WEEKLY (1/W)
     Route: 058
     Dates: start: 202404
  4. TIRZEPATIDE [Suspect]
     Active Substance: TIRZEPATIDE
     Indication: Weight control
     Dosage: 10 MG, WEEKLY (1/W)
     Route: 058
     Dates: start: 202404
  5. LEVOCARNITINE [Concomitant]
     Active Substance: LEVOCARNITINE
     Indication: Product used for unknown indication
     Dosage: 300 MG, UNKNOWN
     Route: 030
  6. FUROSEMIDE [Concomitant]
     Active Substance: FUROSEMIDE
     Indication: Product used for unknown indication
     Dosage: 5 MG, UNKNOWN
     Route: 030
  7. FUROSEMIDE [Concomitant]
     Active Substance: FUROSEMIDE
     Dosage: 10 MG, UNKNOWN
     Route: 030
  8. CAFFEINE [Concomitant]
     Active Substance: CAFFEINE
     Indication: Product used for unknown indication
     Dosage: 100 MG, UNKNOWN
     Route: 030
  9. THEACRINE [Concomitant]
     Indication: Product used for unknown indication
     Dosage: 50 MG, UNKNOWN
     Route: 030
  10. VITAMIN B3 [Concomitant]
     Active Substance: NIACIN
     Indication: Product used for unknown indication
     Dosage: 30 MG, UNKNOWN
     Route: 030
  11. LIMONENE, (+/-)- [Concomitant]
     Active Substance: LIMONENE, (+/-)-
     Indication: Product used for unknown indication
     Dosage: 50 MG, UNKNOWN
     Route: 030
  12. LIDOCAINE [Concomitant]
     Active Substance: LIDOCAINE
     Indication: Product used for unknown indication
     Dosage: UNK, UNKNOWN
     Route: 030

REACTIONS (17)
  - Nephrolithiasis [Unknown]
  - Haematuria [Recovered/Resolved]
  - Dysmorphism [Unknown]
  - Blood urea increased [Unknown]
  - Blood sodium decreased [Unknown]
  - Glycosylated haemoglobin decreased [Unknown]
  - Blood cholesterol increased [Unknown]
  - Low density lipoprotein increased [Unknown]
  - Serum ferritin increased [Unknown]
  - International normalised ratio increased [Unknown]
  - Activated partial thromboplastin time shortened [Unknown]
  - Prostatic specific antigen decreased [Unknown]
  - Protein total decreased [Unknown]
  - Blood glucose decreased [Unknown]
  - Haemoglobin decreased [Unknown]
  - Influenza [Unknown]
  - Off label use [Unknown]

NARRATIVE: CASE EVENT DATE: 20240829
